FAERS Safety Report 8847230 (Version 1)
Quarter: 2012Q4

REPORT INFORMATION
  Report Type: Spontaneous
  Country: US (occurrence: None)
  Receive Date: 20121017
  Receipt Date: 20121017
  Transmission Date: 20130627
  Serious: Yes (Other)
  Sender: FDA-Public Use
  Company Number: None

PATIENT
  Age: 23 Year
  Sex: Male
  Weight: 78.02 kg

DRUGS (7)
  1. DEPAKOTE ER [Suspect]
     Indication: SEIZURE
     Dosage: breakfast + bedtime
     Route: 048
     Dates: start: 20090212
  2. DEPAKOTE ER [Suspect]
     Indication: SEIZURE
     Route: 048
  3. KEPPRA [Concomitant]
  4. FALBUTOL [Concomitant]
  5. ONFI [Concomitant]
  6. DIASTAT [Concomitant]
  7. KLONOPIN [Concomitant]

REACTIONS (2)
  - Product substitution issue [None]
  - Grand mal convulsion [None]
